FAERS Safety Report 9481709 (Version 1)
Quarter: 2013Q3

REPORT INFORMATION
  Report Type: Spontaneous
  Country: US (occurrence: US)
  Receive Date: 20130828
  Receipt Date: 20130828
  Transmission Date: 20140515
  Serious: Yes (Hospitalization)
  Sender: FDA-Public Use
  Company Number: US-AMGEN-KDL209960

PATIENT
  Age: 60 Year
  Sex: Female

DRUGS (2)
  1. ENBREL [Suspect]
     Indication: PSORIASIS
     Dosage: UNK UNK, UNK
     Route: 065
     Dates: end: 20060810
  2. UNKNOWN [Concomitant]
     Dosage: 2.5 MG, UNK
     Route: 048
     Dates: start: 2006

REACTIONS (2)
  - Myocardial infarction [Unknown]
  - Bronchitis [Not Recovered/Not Resolved]
